FAERS Safety Report 19653179 (Version 1)
Quarter: 2021Q3

REPORT INFORMATION
  Report Type: Spontaneous
  Country: CA (occurrence: CA)
  Receive Date: 20210803
  Receipt Date: 20210803
  Transmission Date: 20211014
  Serious: Yes (Other)
  Sender: FDA-Public Use
  Company Number: CA-PFIZER INC-202100985427

PATIENT
  Age: 81 Year
  Sex: Male

DRUGS (2)
  1. LIPITOR [Suspect]
     Active Substance: ATORVASTATIN CALCIUM
     Indication: CORONARY ARTERY DISEASE
     Route: 065
  2. ALTACE [Concomitant]
     Active Substance: RAMIPRIL

REACTIONS (3)
  - Product substitution issue [Unknown]
  - Malaise [Unknown]
  - Chest pain [Unknown]
